FAERS Safety Report 20499856 (Version 1)
Quarter: 2022Q1

REPORT INFORMATION
  Report Type: Spontaneous
  Country: US (occurrence: US)
  Receive Date: 20220222
  Receipt Date: 20220222
  Transmission Date: 20220423
  Serious: No
  Sender: FDA-Public Use
  Company Number: US-UCBSA-2021020991

PATIENT
  Age: 3 Month
  Sex: Male

DRUGS (7)
  1. LEVETIRACETAM [Suspect]
     Active Substance: LEVETIRACETAM
     Indication: Seizure
     Dosage: UNK
  2. CEFTRIAXONE [Concomitant]
     Active Substance: CEFTRIAXONE
     Indication: Seizure
  3. DEXAMETHASONE [Concomitant]
     Active Substance: DEXAMETHASONE
     Indication: Seizure
  4. FOSPHENYTOIN [Concomitant]
     Active Substance: FOSPHENYTOIN
     Indication: Seizure
  5. PHENOBARBITAL [Concomitant]
     Active Substance: PHENOBARBITAL
     Indication: Seizure
  6. PENTOBARBITAL [Concomitant]
     Active Substance: PENTOBARBITAL
     Indication: Seizure
  7. PROPOFOL [Concomitant]
     Active Substance: PROPOFOL
     Indication: Seizure

REACTIONS (1)
  - Seizure [Unknown]
